FAERS Safety Report 24936292 (Version 2)
Quarter: 2025Q1

REPORT INFORMATION
  Report Type: Spontaneous
  Country: PL (occurrence: PL)
  Receive Date: 20250206
  Receipt Date: 20250212
  Transmission Date: 20250408
  Serious: Yes (Life-Threatening, Hospitalization)
  Sender: EMD SERONO INC
  Company Number: None

PATIENT
  Age: 71 Year
  Sex: Male

DRUGS (7)
  1. GLUCOPHAGE XR [Suspect]
     Active Substance: METFORMIN HYDROCHLORIDE
     Indication: Type 2 diabetes mellitus
     Dosage: GLUCOPHAGE XR 1000 MG EXTENDED-RELEASE TABLETS IN THE EVENING.
  2. INVOKANA [Concomitant]
     Active Substance: CANAGLIFLOZIN
     Indication: Type 1 diabetes mellitus
     Dosage: IN THE MORNING
  3. LINAGLIPTIN [Concomitant]
     Active Substance: LINAGLIPTIN
     Indication: Type 2 diabetes mellitus
     Dosage: IN THE EVENING
  4. MILGAMMA [BENFOTIAMINE;PYRIDOXINE HYDROCHLORIDE] [Concomitant]
     Indication: Product used for unknown indication
     Dosage: MILGAMMA 100 MG PLUS 100 MG DRAGEES
  5. GLICLAZIDE [Concomitant]
     Active Substance: GLICLAZIDE
     Indication: Product used for unknown indication
     Dosage: DIAPREL MR 30 MG MODIFIED RELEASE TABLETS IN THE MORNING
  6. ROSUVASTATIN [Concomitant]
     Active Substance: ROSUVASTATIN
     Indication: Hyperlipidaemia
     Dosage: ROSWERA 5 MG COATED TABLETS IN THE EVENING
  7. ASPIRIN [Concomitant]
     Active Substance: ASPIRIN
     Indication: Product used for unknown indication
     Dosage: ACARD 75 MG ENTERAL TABLETS IN THE EVENING

REACTIONS (1)
  - Metabolic acidosis [Unknown]

NARRATIVE: CASE EVENT DATE: 20210907
